FAERS Safety Report 8470584-5 (Version None)
Quarter: 2012Q2

REPORT INFORMATION
  Report Type: 
  Country: None (occurrence: None)
  Receive Date: 20120627
  Receipt Date: 20120620
  Transmission Date: 20120825
  Serious: Yes (Other)
  Sender: FDA-Public Use
  Company Number: PHHY2012DE053623

PATIENT
  Sex: Female

DRUGS (1)
  1. EXTAVIA [Suspect]
     Indication: MULTIPLE SCLEROSIS
     Dosage: 0.25 ML, ONCE
     Route: 058
     Dates: start: 20120618, end: 20120620

REACTIONS (6)
  - RASH PUSTULAR [None]
  - MUSCLE SPASMS [None]
  - LIP SWELLING [None]
  - SWELLING FACE [None]
  - URINARY INCONTINENCE [None]
  - DIARRHOEA [None]
